FAERS Safety Report 6970295-9 (Version None)
Quarter: 2010Q3

REPORT INFORMATION
  Report Type: 
  Country: None (occurrence: None)
  Receive Date: 20100908
  Receipt Date: 20100831
  Transmission Date: 20110219
  Serious: Yes (Disabling, Other)
  Sender: FDA-Public Use
  Company Number: US-BAYER-US-2007-023135

PATIENT

DRUGS (3)
  1. MAGNEVIST [Suspect]
     Indication: NUCLEAR MAGNETIC RESONANCE IMAGING
     Dosage: UNK, UNK
     Dates: start: 20060127, end: 20060127
  2. MAGNEVIST [Suspect]
     Dosage: UNK, UNK
  3. OMNISCAN [Suspect]
     Indication: NUCLEAR MAGNETIC RESONANCE IMAGING
     Dosage: UNK, UNK
     Dates: start: 20051010, end: 20051010

REACTIONS (1)
  - NEPHROGENIC SYSTEMIC FIBROSIS [None]
